FAERS Safety Report 16687455 (Version 1)
Quarter: 2019Q3

REPORT INFORMATION
  Report Type: Spontaneous
  Country: US (occurrence: US)
  Receive Date: 20190809
  Receipt Date: 20190809
  Transmission Date: 20191004
  Serious: No
  Sender: FDA-Public Use
  Company Number: US-009507513-1907USA014171

PATIENT
  Sex: Female
  Weight: 69.39 kg

DRUGS (6)
  1. VILAZODONE [Suspect]
     Active Substance: VILAZODONE
     Indication: GENERALISED ANXIETY DISORDER
     Dosage: 40 MILLIGRAM, QD
     Route: 048
     Dates: start: 20170907, end: 20170907
  2. CHOLECALCIFEROL [Concomitant]
     Active Substance: CHOLECALCIFEROL
     Dosage: UNK
     Dates: start: 20180827
  3. VILAZODONE [Suspect]
     Active Substance: VILAZODONE
     Dosage: 20 MILLIGRAM, QD
     Route: 048
     Dates: start: 20170804
  4. REMERON [Suspect]
     Active Substance: MIRTAZAPINE
     Dosage: UNK
     Route: 048
     Dates: start: 20161227, end: 20171130
  5. VILAZODONE [Suspect]
     Active Substance: VILAZODONE
     Indication: MAJOR DEPRESSION
     Dosage: 40 MILLIGRAM, QD
     Route: 048
     Dates: start: 20161227, end: 20170804
  6. CLONAZEPAM. [Concomitant]
     Active Substance: CLONAZEPAM
     Dosage: UNK
     Dates: start: 20170220

REACTIONS (4)
  - Sleep disorder [Not Recovered/Not Resolved]
  - Abnormal dreams [Unknown]
  - Weight increased [Unknown]
  - Off label use [Unknown]
